FAERS Safety Report 9618412 (Version 1)
Quarter: 2013Q4

REPORT INFORMATION
  Report Type: Spontaneous
  Country: IT (occurrence: IT)
  Receive Date: 20131014
  Receipt Date: 20131014
  Transmission Date: 20140711
  Serious: Yes (Hospitalization)
  Sender: FDA-Public Use
  Company Number: IT-JNJFOC-20131002309

PATIENT
  Age: 24 Year
  Sex: Female

DRUGS (5)
  1. REMICADE [Suspect]
     Indication: COLITIS ULCERATIVE
     Dosage: 100 MG STRENGTH, CYCLICAL.
     Route: 042
     Dates: start: 20130409
  2. REMICADE [Suspect]
     Indication: COLITIS ULCERATIVE
     Dosage: CYCLICAL, SECOND INFUSION
     Route: 042
     Dates: start: 20130423, end: 20130423
  3. MESAVANCOL [Suspect]
     Indication: PRODUCT USED FOR UNKNOWN INDICATION
     Route: 048
  4. DELTACORTENE [Suspect]
     Indication: PRODUCT USED FOR UNKNOWN INDICATION
     Dosage: 2.5 MG.
     Route: 065
  5. NEXIUM [Concomitant]
     Dosage: 1 POSOLOGICAL UNIT
     Route: 048

REACTIONS (2)
  - Abdominal pain upper [Recovering/Resolving]
  - Pancreatitis [Recovering/Resolving]
